FAERS Safety Report 4835148-0 (Version None)
Quarter: 2005Q4

REPORT INFORMATION
  Report Type: 
  Country: None (occurrence: None)
  Receive Date: 20051114
  Receipt Date: 20051025
  Transmission Date: 20060501
  Serious: Yes (Hospitalization)
  Sender: FDA-Public Use
  Company Number: CIO05008042

PATIENT
  Age: 70 Year
  Sex: Female

DRUGS (6)
  1. METAMUCIL, VERSION/TEXTURE (SPYLLIUM HYDROPHILIC MUCILLOID 3.4 G) POWD [Suspect]
     Indication: PROPHYLAXIS
     Dosage: ORAL
     Route: 048
  2. TOPROL-XL [Concomitant]
  3. LORAZEPAM [Concomitant]
  4. LEXAPRO [Concomitant]
  5. LIPITOR [Concomitant]
  6. ASPIRIN [Concomitant]

REACTIONS (2)
  - ANAPHYLACTIC REACTION [None]
  - REACTION TO AZO-DYES [None]
